FAERS Safety Report 6027533-9 (Version None)
Quarter: 2008Q4

REPORT INFORMATION
  Report Type: 
  Country: None (occurrence: None)
  Receive Date: 20081222
  Receipt Date: 20081016
  Transmission Date: 20090506
  Serious: No
  Sender: FDA-Public Use
  Company Number: US-WYE-H05185108

PATIENT
  Age: 75 Year
  Sex: Female
  Weight: 52.21 kg

DRUGS (3)
  1. PRISTIQ [Suspect]
     Indication: MIGRAINE
     Dosage: 50 MG 1X PER 1 DAY, ORAL
     Route: 048
     Dates: start: 20080716, end: 20080717
  2. LEVOTHYROXINE SODIUM [Concomitant]
  3. IMITREX (SUMATRIPTAN SUCCINATE) [Concomitant]

REACTIONS (2)
  - FEELING JITTERY [None]
  - NAUSEA [None]
